FAERS Safety Report 5842709-9 (Version None)
Quarter: 2008Q3

REPORT INFORMATION
  Report Type: 
  Country: None (occurrence: None)
  Receive Date: 20080808
  Receipt Date: 20080724
  Transmission Date: 20090109
  Serious: Yes (Hospitalization)
  Sender: FDA-Public Use
  Company Number: TRP_05835_2008

PATIENT
  Sex: Male

DRUGS (9)
  1. RIBAPAK/ RIBAVIRIN/ THREE RIVERS PHARMA 400 MG [Suspect]
     Indication: HEPATITIS C VIRUS TEST
     Dosage: 400 MG BID ORAL
     Route: 048
     Dates: start: 20080603, end: 20080628
  2. RIBAVIRIN [Suspect]
     Indication: HEPATITIS C VIRUS TEST
     Dosage: DF ORAL
     Route: 048
     Dates: start: 20070814
  3. PEGASYS [Suspect]
     Indication: HEPATITIS C VIRUS TEST
     Dosage: 135 UG 1X/WEEK SUBCUTANEOUS
     Route: 058
     Dates: start: 20080603, end: 20080628
  4. WELLBUTRIN [Suspect]
     Indication: DRUG USE FOR UNKNOWN INDICATION
     Dosage: 30 DF TOTAL, DF
     Dates: start: 20080628, end: 20080628
  5. WELLBUTRIN [Suspect]
     Indication: SUICIDE ATTEMPT
     Dosage: 30 DF TOTAL, DF
     Dates: start: 20080628, end: 20080628
  6. SEROQUEL [Suspect]
     Indication: DRUG USE FOR UNKNOWN INDICATION
     Dosage: 30 DF TOTAL, (DF)
     Dates: start: 20080628, end: 20080628
  7. SEROQUEL [Suspect]
     Indication: SUICIDE ATTEMPT
     Dosage: 30 DF TOTAL, (DF)
     Dates: start: 20080628, end: 20080628
  8. CLONIDINE [Suspect]
     Indication: DRUG USE FOR UNKNOWN INDICATION
     Dosage: 15 DF TOTAL, (DF)
     Dates: start: 20080628, end: 20080628
  9. CLONIDINE [Suspect]
     Indication: SUICIDE ATTEMPT
     Dosage: 15 DF TOTAL, (DF)
     Dates: start: 20080628, end: 20080628

REACTIONS (4)
  - EPISTAXIS [None]
  - INCORRECT DOSE ADMINISTERED [None]
  - RECTAL HAEMORRHAGE [None]
  - SUICIDE ATTEMPT [None]
